FAERS Safety Report 6386508-0 (Version None)
Quarter: 2009Q4

REPORT INFORMATION
  Report Type: 
  Country: None (occurrence: None)
  Receive Date: 20091002
  Receipt Date: 20090611
  Transmission Date: 20100525
  Serious: No
  Sender: FDA-Public Use
  Company Number: US-ASTRAZENECA-2009UW14992

PATIENT
  Age: 20107 Day
  Sex: Female
  Weight: 136.1 kg

DRUGS (1)
  1. ARIMIDEX [Suspect]
     Indication: BREAST CANCER
     Route: 048
     Dates: start: 20090603

REACTIONS (2)
  - DIZZINESS [None]
  - RESPIRATORY TRACT INFECTION [None]
